FAERS Safety Report 5952020-3 (Version None)
Quarter: 2008Q4

REPORT INFORMATION
  Report Type: 
  Country: None (occurrence: None)
  Receive Date: 20081113
  Receipt Date: 20071130
  Transmission Date: 20090506
  Serious: No
  Sender: FDA-Public Use
  Company Number: A0696815A

PATIENT
  Age: 71 Year
  Sex: Female

DRUGS (3)
  1. COREG [Suspect]
     Dosage: 6.25MG UNKNOWN
     Route: 048
  2. COREG CR [Suspect]
     Dosage: 10MG PER DAY
     Route: 048
  3. DIGITEK [Concomitant]

REACTIONS (1)
  - DYSPNOEA [None]
